FAERS Safety Report 11964684 (Version 1)
Quarter: 2016Q1

REPORT INFORMATION
  Report Type: Spontaneous
  Country: US (occurrence: US)
  Receive Date: 20160127
  Receipt Date: 20160127
  Transmission Date: 20160526
  Serious: No
  Sender: FDA-Public Use
  Company Number: US-GLENMARK PHARMACEUTICALS INC, USA.-2015GMK020311

PATIENT

DRUGS (2)
  1. NORETHINDRONE AND ETHINYL ESTRADIOL TABLETS USP, 0.5 MG/0.0025 MG [Suspect]
     Active Substance: ETHINYL ESTRADIOL\NORETHINDRONE ACETATE
     Indication: HORMONE REPLACEMENT THERAPY
     Dosage: 1 DF, OD
     Route: 048
     Dates: start: 20150909, end: 20151020
  2. NORETHINDRONE AND ETHINYL ESTRADIOL TABLETS USP, 0.5 MG/0.0025 MG [Suspect]
     Active Substance: ETHINYL ESTRADIOL\NORETHINDRONE ACETATE
     Dosage: 1 DF, OD
     Route: 048
     Dates: start: 20150909, end: 20151020

REACTIONS (3)
  - Urinary tract infection [Not Recovered/Not Resolved]
  - Malaise [Recovered/Resolved]
  - Product substitution issue [Unknown]

NARRATIVE: CASE EVENT DATE: 20150919
